FAERS Safety Report 16426623 (Version 1)
Quarter: 2019Q3

REPORT INFORMATION
  Report Type: Spontaneous
  Country: IN (occurrence: IN)
  Receive Date: 20190612
  Receipt Date: 20190612
  Transmission Date: 20191004
  Serious: No
  Sender: FDA-Public Use
  Company Number: None

PATIENT
  Age: 70 Year
  Sex: Female
  Weight: 55 kg

DRUGS (2)
  1. LOSARTAN 50MG [Suspect]
     Active Substance: LOSARTAN
  2. AMLOZAAR H [Suspect]
     Active Substance: AMLODIPINE BESYLATE\HYDROCHLOROTHIAZIDE\LOSARTAN
     Dates: start: 20130611

REACTIONS (2)
  - Renal cancer [None]
  - Product impurity [None]

NARRATIVE: CASE EVENT DATE: 20180212
